FAERS Safety Report 24578729 (Version 1)
Quarter: 2024Q4

REPORT INFORMATION
  Report Type: Spontaneous
  Country: US (occurrence: US)
  Receive Date: 20241105
  Receipt Date: 20241105
  Transmission Date: 20250114
  Serious: Yes (Hospitalization)
  Sender: JAZZ
  Company Number: US-JAZZ PHARMACEUTICALS-2024-US-018102

PATIENT
  Age: 29 Year
  Sex: Male
  Weight: 94.8 kg

DRUGS (4)
  1. ZEPZELCA [Suspect]
     Active Substance: LURBINECTEDIN
     Indication: Small cell lung cancer
     Dosage: UNK, OCCURED WITH CYCLE 7
     Route: 042
     Dates: start: 20240412
  2. ZEPZELCA [Suspect]
     Active Substance: LURBINECTEDIN
     Dosage: UNK
     Dates: start: 20241029
  3. ONDANSETRON [Concomitant]
     Active Substance: ONDANSETRON
     Indication: Product used for unknown indication
     Dosage: UNK
  4. DEXAMETHASONE [Concomitant]
     Active Substance: DEXAMETHASONE
     Indication: Product used for unknown indication
     Dosage: UNK

REACTIONS (1)
  - Catheter site related reaction [Not Recovered/Not Resolved]

NARRATIVE: CASE EVENT DATE: 20241003
